FAERS Safety Report 5018401-X (Version None)
Quarter: 2006Q2

REPORT INFORMATION
  Report Type: 
  Country: None (occurrence: None)
  Receive Date: 20060605
  Receipt Date: 20060529
  Transmission Date: 20061013
  Serious: Yes (Hospitalization)
  Sender: FDA-Public Use
  Company Number: PHNU2006DE02114

PATIENT
  Sex: Female

DRUGS (1)
  1. ELIDEL [Suspect]
     Indication: DERMATITIS ATOPIC
     Dosage: UNK, UNK
     Route: 061
     Dates: start: 20050101

REACTIONS (2)
  - SKIN NEOPLASM EXCISION [None]
  - SQUAMOUS CELL CARCINOMA [None]
